FAERS Safety Report 5993601-0 (Version None)
Quarter: 2008Q4

REPORT INFORMATION
  Report Type: 
  Country: None (occurrence: None)
  Receive Date: 20081210
  Receipt Date: 20081124
  Transmission Date: 20090506
  Serious: Yes (Hospitalization)
  Sender: FDA-Public Use
  Company Number: 17123

PATIENT
  Sex: Female

DRUGS (1)
  1. PRIMACARE (THER-TX CORPORATION) [Suspect]

REACTIONS (2)
  - HAEMOGLOBIN DECREASED [None]
  - POST PROCEDURAL HAEMORRHAGE [None]
